FAERS Safety Report 25299747 (Version 3)
Quarter: 2025Q2

REPORT INFORMATION
  Report Type: Report from Study
  Country: FR (occurrence: FR)
  Receive Date: 20250512
  Receipt Date: 20250630
  Transmission Date: 20250717
  Serious: Yes (Death, Congenital Anomaly)
  Sender: ABBVIE
  Company Number: None

PATIENT

DRUGS (4)
  1. NORVIR [Suspect]
     Active Substance: RITONAVIR
     Indication: Maternal exposure timing unspecified
     Route: 064
     Dates: start: 20231001, end: 20231005
  2. ISENTRESS [Suspect]
     Active Substance: RALTEGRAVIR POTASSIUM
     Indication: Maternal exposure timing unspecified
     Route: 064
     Dates: start: 20231001, end: 20231005
  3. BIKTARVY [Suspect]
     Active Substance: BICTEGRAVIR SODIUM\EMTRICITABINE\TENOFOVIR ALAFENAMIDE FUMARATE
     Indication: Maternal exposure timing unspecified
     Route: 064
     Dates: start: 20230620, end: 20230930
  4. TRUVADA [Suspect]
     Active Substance: EMTRICITABINE\TENOFOVIR DISOPROXIL FUMARATE
     Indication: Maternal exposure timing unspecified
     Route: 064
     Dates: start: 20231001, end: 20231005

REACTIONS (2)
  - Foetal malformation [Fatal]
  - Foetal exposure during pregnancy [Unknown]
